FAERS Safety Report 6971725-9 (Version None)
Quarter: 2010Q3

REPORT INFORMATION
  Report Type: 
  Country: None (occurrence: None)
  Receive Date: 20100903
  Receipt Date: 20100830
  Transmission Date: 20110219
  Serious: Yes (Hospitalization)
  Sender: FDA-Public Use
  Company Number: 017239

PATIENT
  Sex: Female

DRUGS (11)
  1. CERTOLIZUMAB PEGOL (CERTOLIZUMAB PEGOL) [Suspect]
     Indication: RHEUMATOID ARTHRITIS
     Dosage: 200 MG 1X/2 WEEKS SUBCUTANEOUS
     Route: 058
     Dates: start: 20100428, end: 20100814
  2. METHOTREXATE [Concomitant]
  3. FOLIC ACID [Concomitant]
  4. DEFLAZACORT [Concomitant]
  5. MELOXICAM [Concomitant]
  6. PIROXICAM [Concomitant]
  7. FERROUS SULFATE [Concomitant]
  8. CAL-D-VITA /01483701/ [Concomitant]
  9. REBAMIPIDE [Concomitant]
  10. METFORMIN HCL [Concomitant]
  11. ATORVASTATIN CALCIUM [Concomitant]

REACTIONS (7)
  - APHTHOUS STOMATITIS [None]
  - BLOOD CREATININE INCREASED [None]
  - COLITIS ISCHAEMIC [None]
  - HAEMOGLOBIN DECREASED [None]
  - ORAL CANDIDIASIS [None]
  - PANCYTOPENIA [None]
  - TUBO-OVARIAN ABSCESS [None]
